FAERS Safety Report 9128470 (Version 2)
Quarter: 2013Q2

REPORT INFORMATION
  Report Type: Report from Study
  Country: US (occurrence: US)
  Receive Date: 20130228
  Receipt Date: 20130412
  Transmission Date: 20140414
  Serious: Yes (Hospitalization)
  Sender: FDA-Public Use
  Company Number: US-VERTEX PHARMACEUTICALS INC.-2013-002825

PATIENT
  Age: 56 Year
  Sex: Female
  Weight: 54 kg

DRUGS (14)
  1. VX-950 (TELAPREVIR) [Suspect]
     Indication: HEPATITIS C
     Dosage: 750 MG, TID
     Route: 048
     Dates: end: 20130315
  2. PEGASYS [Suspect]
     Indication: HEPATITIS C
     Dosage: 180 ?G, QW
  3. PEGASYS [Suspect]
     Dosage: 135 ?G, QW
  4. RIBAVIRIN [Suspect]
     Indication: HEPATITIS C
     Dosage: 600MG AM, 400MG PM
  5. RIBAVIRIN [Suspect]
     Dosage: 400MG AM, 200MG PM
  6. HYDROCORTISONE [Concomitant]
  7. HYDROCHLOROTHIAZIDE [Concomitant]
     Dosage: 25 MG, UNK
  8. PREVACID [Concomitant]
     Dosage: 15 MG, UNK
  9. CETIRIZINE [Concomitant]
     Indication: HYPERSENSITIVITY
     Dosage: 10MG, PRN, QHS
  10. NORTRIPTYLIN [Concomitant]
     Dosage: 25 MG, UNK
  11. DIAZEPAM [Concomitant]
     Indication: HEADACHE
     Dosage: 5 MG, PRN
  12. FIORINAL [Concomitant]
     Indication: HEADACHE
     Dosage: PRN
  13. PROCRIT                            /00928302/ [Concomitant]
     Dosage: 40000 UT, TWICE A WEEK
     Route: 058
  14. NEUPOGEN [Concomitant]
     Dosage: 300/ 0.5

REACTIONS (6)
  - Red blood cell count decreased [Unknown]
  - White blood cell count decreased [Unknown]
  - Asthma [Unknown]
  - Wheezing [Unknown]
  - Dyspnoea [Unknown]
  - Nausea [Unknown]
